FAERS Safety Report 20628449 (Version 1)
Quarter: 2022Q1

REPORT INFORMATION
  Report Type: Report from Study
  Country: DE (occurrence: DE)
  Receive Date: 20220323
  Receipt Date: 20220323
  Transmission Date: 20220423
  Serious: Yes (Hospitalization)
  Sender: FDA-Public Use
  Company Number: DE-SA-2019SA077501

PATIENT
  Age: 64 Year
  Sex: Male
  Weight: 80 kg

DRUGS (10)
  1. FLUOROURACIL [Suspect]
     Active Substance: FLUOROURACIL
     Indication: Product used for unknown indication
     Dosage: UNK
  2. OXALIPLATIN [Suspect]
     Active Substance: OXALIPLATIN
     Indication: Rectal cancer
     Dosage: 170 MILLIGRAM, CYCLE
     Route: 042
     Dates: start: 20190215, end: 20190215
  3. OXALIPLATIN [Suspect]
     Active Substance: OXALIPLATIN
     Dosage: 170 MILLIGRAM, CYCLE
     Route: 042
     Dates: start: 20190318, end: 20190318
  4. LEUCOVORIN [Suspect]
     Active Substance: LEUCOVORIN
     Indication: Rectal cancer
     Dosage: 700 MILLIGRAM, CYCLE
     Route: 042
     Dates: start: 20190304, end: 20190304
  5. LEUCOVORIN [Suspect]
     Active Substance: LEUCOVORIN
     Dosage: 700 MILLIGRAM, CYCLE
     Route: 042
     Dates: start: 20190215, end: 20190215
  6. FLUOROURACIL [Suspect]
     Active Substance: FLUOROURACIL
     Indication: Rectal cancer
     Dosage: 5600 MILLIGRAM, CYCLE
     Route: 042
     Dates: start: 20190305, end: 20190305
  7. FLUOROURACIL [Suspect]
     Active Substance: FLUOROURACIL
     Dosage: 5600 MILLIGRAM, CYCLE
     Route: 042
     Dates: start: 20190215, end: 20190215
  8. AFLIBERCEPT [Suspect]
     Active Substance: AFLIBERCEPT
     Indication: Rectal cancer
     Dosage: 320 MILLIGRAM, CYCLE
     Route: 042
     Dates: start: 20190215, end: 20190215
  9. AFLIBERCEPT [Suspect]
     Active Substance: AFLIBERCEPT
     Dosage: 320 MILLIGRAM, CYCLE
     Route: 042
     Dates: start: 20190318, end: 20190318
  10. LEUCOVORIN [Concomitant]
     Active Substance: LEUCOVORIN
     Dosage: UNK

REACTIONS (3)
  - Proteinuria [Recovered/Resolved]
  - Hypertension [Recovered/Resolved]
  - Nephrotic syndrome [Recovered/Resolved]

NARRATIVE: CASE EVENT DATE: 20190318
